FAERS Safety Report 9638047 (Version 4)
Quarter: 2014Q2

REPORT INFORMATION
  Report Type: Spontaneous
  Country: US (occurrence: US)
  Receive Date: 20131022
  Receipt Date: 20140414
  Transmission Date: 20141212
  Serious: Yes (Other)
  Sender: FDA-Public Use
  Company Number: US-BAYER-2013-126388

PATIENT
  Age: 24 Year
  Sex: Female
  Weight: 80.27 kg

DRUGS (7)
  1. MIRENA [Suspect]
     Indication: CONTRACEPTION
     Dosage: 20 MCG/24HR, CONT
     Route: 015
     Dates: start: 20080527, end: 20110915
  2. ANAPROX DS [Concomitant]
     Dosage: 550 MG, UNK
  3. COLACE [Concomitant]
     Dosage: 100 MG, UNK
  4. ASPIRIN [Concomitant]
  5. DARVOCET [Concomitant]
  6. DOXYCYCLINE [Concomitant]
  7. LORTAB [Concomitant]

REACTIONS (13)
  - Medical device complication [None]
  - Injury [None]
  - Pain [None]
  - Uterine perforation [None]
  - Pelvic adhesions [None]
  - Abdominal pain [None]
  - Back pain [None]
  - Uterine fibrosis [None]
  - Endometriosis [None]
  - Depression [None]
  - Anxiety [None]
  - Fear [None]
  - Abortion spontaneous [None]
